FAERS Safety Report 21675953 (Version 1)
Quarter: 2022Q4

REPORT INFORMATION
  Report Type: Spontaneous
  Country: HR (occurrence: None)
  Receive Date: 20221202
  Receipt Date: 20221202
  Transmission Date: 20230113
  Serious: Yes (Other)
  Sender: FDA-Public Use
  Company Number: 2022A388887

PATIENT
  Sex: Female
  Weight: 70 kg

DRUGS (7)
  1. QUETIAPINE FUMARATE [Suspect]
     Active Substance: QUETIAPINE FUMARATE
     Dosage: UNK
     Route: 048
     Dates: start: 20221015, end: 20221015
  2. FEVARIN [Suspect]
     Active Substance: FLUVOXAMINE MALEATE
     Dosage: 2 BLISTERA OD 100 MG
     Route: 048
     Dates: start: 20221015, end: 20221015
  3. VENLAFAXINE HYDROCHLORIDE [Suspect]
     Active Substance: VENLAFAXINE HYDROCHLORIDE
     Dosage: 1 DF= 1 TABLET
     Route: 048
     Dates: start: 20221015, end: 20221015
  4. ALPRAZOLAM [Suspect]
     Active Substance: ALPRAZOLAM
     Dosage: UNK
     Route: 048
     Dates: start: 20221015, end: 20221015
  5. LAMOTRIGINE [Suspect]
     Active Substance: LAMOTRIGINE
     Dosage: UNK
     Route: 048
     Dates: start: 20221015, end: 20221015
  6. NORMABEL [Suspect]
     Active Substance: DIAZEPAM
     Route: 048
     Dates: start: 20221015, end: 20221015
  7. BISOPROLOL FUMARATE [Suspect]
     Active Substance: BISOPROLOL FUMARATE
     Route: 048
     Dates: start: 20221015, end: 20221015

REACTIONS (5)
  - Intentional overdose [Unknown]
  - Suicide attempt [Unknown]
  - Somnolence [Unknown]
  - Bradycardia [Unknown]
  - Hypotension [Unknown]

NARRATIVE: CASE EVENT DATE: 20221015
